FAERS Safety Report 5527820-4 (Version None)
Quarter: 2007Q4

REPORT INFORMATION
  Report Type: 
  Country: None (occurrence: None)
  Receive Date: 20071128
  Receipt Date: 20071115
  Transmission Date: 20080405
  Serious: Yes (Other)
  Sender: FDA-Public Use
  Company Number: B0494498A

PATIENT
  Age: 38 Year
  Sex: Female

DRUGS (8)
  1. BETAMETHASONE SODIUM PHOSPHATE [Suspect]
     Indication: KERATITIS
     Dosage: .1%DS PER DAY
     Route: 061
     Dates: start: 20060508
  2. SULFAMETHOXAZOLE AND TRIMETHOPRIM [Suspect]
     Route: 048
     Dates: start: 20060706, end: 20060716
  3. FLUOROMETHOLONE [Suspect]
     Dosage: .1%DS PER DAY
     Route: 061
  4. ACYCLOVIR [Concomitant]
     Indication: HERPES VIRUS INFECTION
     Dosage: 3%DS PER DAY
     Route: 061
     Dates: start: 20070601
  5. TOBRAMYCIN [Concomitant]
     Dosage: .3%DS PER DAY
     Route: 061
  6. COLISTINEMETHANESULFONATE [Concomitant]
     Dosage: 10MGML PER DAY
     Route: 061
  7. CHLORAMPHENICOL [Concomitant]
     Dosage: .25%DS PER DAY
     Route: 061
  8. SULFISOXAZOLE [Concomitant]
     Dosage: 4%DS PER DAY
     Route: 061

REACTIONS (7)
  - CONDITION AGGRAVATED [None]
  - CONJUNCTIVAL HYPERAEMIA [None]
  - CORNEAL OPACITY [None]
  - EYE PAIN [None]
  - GASTROINTESTINAL DISORDER [None]
  - KERATITIS [None]
  - KERATITIS HERPETIC [None]
